FAERS Safety Report 9187986 (Version 1)
Quarter: 2013Q1

REPORT INFORMATION
  Report Type: Spontaneous
  Country: US (occurrence: US)
  Receive Date: 20130325
  Receipt Date: 20130325
  Transmission Date: 20140127
  Serious: No
  Sender: FDA-Public Use
  Company Number: US-MYLANLABS-2012S1022782

PATIENT
  Age: 47 Year
  Sex: Female

DRUGS (8)
  1. FENTANYL TRANSDERMAL SYSTEM [Suspect]
     Indication: PAIN
     Dosage: Q72H
     Route: 062
     Dates: start: 2008
  2. HYDROCORTISONE [Concomitant]
     Dosage: TABLETS
  3. KYTRIL [Concomitant]
  4. ALLEGRA-D [Concomitant]
  5. COD LIVER OIL [Concomitant]
  6. SINGULAR [Concomitant]
  7. VITAMIN D [Concomitant]
  8. ALIGN [Concomitant]

REACTIONS (2)
  - Drug withdrawal syndrome [Recovered/Resolved]
  - No adverse event [Not Recovered/Not Resolved]
